FAERS Safety Report 17618468 (Version 1)
Quarter: 2020Q2

REPORT INFORMATION
  Report Type: Spontaneous
  Country: CN (occurrence: CN)
  Receive Date: 20200402
  Receipt Date: 20200402
  Transmission Date: 20200713
  Serious: No
  Sender: FDA-Public Use
  Company Number: CN-B.BRAUN MEDICAL INC.-2082263

PATIENT
  Age: 34 Year
  Sex: Male
  Weight: 70 kg

DRUGS (1)
  1. NUTRILIPID I.V. FAT EMULSION [Suspect]
     Active Substance: SOYBEAN OIL
     Indication: DRUG THERAPY
     Route: 041
     Dates: start: 20191112, end: 20191112

REACTIONS (1)
  - Dyspnoea [Recovered/Resolved]

NARRATIVE: CASE EVENT DATE: 20191112
